FAERS Safety Report 23918109 (Version 1)
Quarter: 2024Q2

REPORT INFORMATION
  Report Type: Other
  Country: PK (occurrence: None)
  Receive Date: 20240530
  Receipt Date: 20240530
  Transmission Date: 20240715
  Serious: Yes (Other)
  Sender: FDA-Public Use
  Company Number: PK-ROCHE-3567607

PATIENT
  Age: 60 Year
  Sex: Female
  Weight: 70 kg

DRUGS (9)
  1. AVASTIN [Suspect]
     Active Substance: BEVACIZUMAB
     Indication: Ovarian cancer
     Route: 042
     Dates: start: 20231101
  2. PLASMA PROTEIN FRACTION (HUMAN) [Concomitant]
     Active Substance: PLASMA PROTEIN FRACTION (HUMAN)
  3. ZOFRAN [Concomitant]
     Active Substance: ONDANSETRON HYDROCHLORIDE
  4. RISEK [OMEPRAZOLE] [Concomitant]
  5. MOTILIUM [Concomitant]
     Active Substance: DOMPERIDONE
  6. VITAMINS [Concomitant]
     Active Substance: VITAMINS
  7. IBERET FOLIC [Concomitant]
  8. ENSURE [Concomitant]
     Active Substance: AMINO ACIDS\DEXTROSE\ELECTROLYTES NOS\SOYBEAN OIL\VITAMINS
  9. BIOYETIN [Concomitant]

REACTIONS (7)
  - Metastasis [Unknown]
  - Metastases to lymph nodes [Unknown]
  - Ascites [Unknown]
  - Carbohydrate antigen 125 increased [Unknown]
  - Cervicitis [Unknown]
  - Adenomyosis [Unknown]
  - Prescribed underdose [Unknown]

NARRATIVE: CASE EVENT DATE: 20240401
